FAERS Safety Report 4941807-1 (Version None)
Quarter: 2006Q1

REPORT INFORMATION
  Report Type: 
  Country: None (occurrence: None)
  Receive Date: 20060307
  Receipt Date: 20060223
  Transmission Date: 20060701
  Serious: Yes (Hospitalization)
  Sender: FDA-Public Use
  Company Number: IL-2006-003770

PATIENT
  Age: 31 Year
  Sex: Female

DRUGS (1)
  1. MIRENA [Suspect]
     Indication: CONTRACEPTION
     Dosage: 20 UG/DAY CONT INTRA-UTERINE
     Route: 015
     Dates: start: 20050401, end: 20050601

REACTIONS (2)
  - ESCHERICHIA INFECTION [None]
  - PELVIC INFLAMMATORY DISEASE [None]
